FAERS Safety Report 20916794 (Version 4)
Quarter: 2022Q2

REPORT INFORMATION
  Report Type: Report from Study
  Country: ES (occurrence: ES)
  Receive Date: 20220605
  Receipt Date: 20220625
  Transmission Date: 20220721
  Serious: Yes (Life-Threatening, Hospitalization, Other)
  Sender: FDA-Public Use
  Company Number: ES-ABBVIE-22K-144-4409084-00

PATIENT
  Sex: Male

DRUGS (3)
  1. CARBIDOPA\LEVODOPA [Suspect]
     Active Substance: CARBIDOPA\LEVODOPA
     Indication: Parkinson^s disease
     Route: 050
     Dates: start: 20220517, end: 20220524
  2. CARBIDOPA\LEVODOPA [Suspect]
     Active Substance: CARBIDOPA\LEVODOPA
     Route: 050
     Dates: start: 202205
  3. CARBIDOPA\LEVODOPA [Suspect]
     Active Substance: CARBIDOPA\LEVODOPA
     Dosage: TWO EXTRA DOSES ADMINISTERED
     Route: 050
     Dates: start: 202205

REACTIONS (9)
  - Peritonitis [Recovered/Resolved]
  - Peritonitis [Recovered/Resolved]
  - Gastrostomy [Unknown]
  - Stoma site extravasation [Not Recovered/Not Resolved]
  - Posture abnormal [Unknown]
  - Device issue [Recovered/Resolved]
  - Device issue [Unknown]
  - Dysstasia [Not Recovered/Not Resolved]
  - Asthenia [Not Recovered/Not Resolved]

NARRATIVE: CASE EVENT DATE: 20220101
